FAERS Safety Report 5038082-9 (Version None)
Quarter: 2006Q2

REPORT INFORMATION
  Report Type: 
  Country: None (occurrence: None)
  Receive Date: 20060602
  Receipt Date: 20060215
  Transmission Date: 20061013
  Serious: No
  Sender: FDA-Public Use
  Company Number: US200602003260

PATIENT
  Age: 47 Year
  Sex: Female

DRUGS (4)
  1. ALIMTA [Suspect]
     Indication: NON-SMALL CELL LUNG CANCER
     Dosage: 500 MG/M2
     Dates: start: 20060215
  2. CYANOCOBALAMIN [Concomitant]
  3. FOLIC ACID [Concomitant]
  4. DEXAMETHASONE TAB [Concomitant]

REACTIONS (1)
  - DERMATITIS BULLOUS [None]
